FAERS Safety Report 5911428-2 (Version None)
Quarter: 2008Q4

REPORT INFORMATION
  Report Type: 
  Country: None (occurrence: None)
  Receive Date: 20081002
  Receipt Date: 20080925
  Transmission Date: 20090506
  Serious: Yes (Hospitalization)
  Sender: FDA-Public Use
  Company Number: FABR-1000414

PATIENT
  Age: 55 Year
  Sex: Male
  Weight: 60 kg

DRUGS (1)
  1. FABRAZYME [Suspect]
     Indication: FABRY'S DISEASE
     Dosage: 70 MG, Q2W, INTRAVENOUS
     Route: 042
     Dates: start: 20030101

REACTIONS (6)
  - ANOREXIA [None]
  - CAMPYLOBACTER INTESTINAL INFECTION [None]
  - CLOSTRIDIUM DIFFICILE COLITIS [None]
  - HAEMODIALYSIS [None]
  - ILL-DEFINED DISORDER [None]
  - RENAL IMPAIRMENT [None]
